FAERS Safety Report 7380902-7 (Version None)
Quarter: 2011Q1

REPORT INFORMATION
  Report Type: 
  Country: None (occurrence: None)
  Receive Date: 20110329
  Receipt Date: 20110315
  Transmission Date: 20110831
  Serious: Yes (Other)
  Sender: FDA-Public Use
  Company Number: PHHY2008GB30170

PATIENT
  Sex: Male

DRUGS (3)
  1. CITALOPRAM HYDROBROMIDE [Concomitant]
     Indication: DEPRESSION
     Dosage: 40 MG, UNK
     Route: 048
  2. BUSPIRONE HCL [Concomitant]
     Indication: ANXIETY
     Dosage: 15 MG, UNK
  3. CLOZARIL [Suspect]
     Indication: SCHIZOPHRENIA
     Dosage: 600 MG/DAY
     Route: 048
     Dates: start: 20020903

REACTIONS (3)
  - WHITE BLOOD CELL COUNT DECREASED [None]
  - HEPATITIS C [None]
  - NEUTROPHIL COUNT DECREASED [None]
